FAERS Safety Report 6847524-5 (Version None)
Quarter: 2010Q3

REPORT INFORMATION
  Report Type: 
  Country: None (occurrence: None)
  Receive Date: 20100716
  Receipt Date: 20100707
  Transmission Date: 20110219
  Serious: Yes (Other)
  Sender: FDA-Public Use
  Company Number: US-PFIZER INC-2010087019

PATIENT
  Sex: Female
  Weight: 47.166 kg

DRUGS (6)
  1. ZOLOFT [Suspect]
     Indication: DEPRESSION
     Dosage: 50 MG, DAILY
     Route: 048
     Dates: start: 20060101, end: 20090101
  2. PRISTIQ [Suspect]
     Indication: DEPRESSION
     Dosage: 50 MG, DAILY
     Route: 048
     Dates: start: 20091001
  3. EFFEXOR [Concomitant]
     Indication: DEPRESSION
     Dosage: UNK
  4. ACTIVELLA [Concomitant]
     Dosage: UNK
  5. SEROQUEL [Concomitant]
     Indication: DEPRESSION
     Dosage: UNK
  6. DULOXETINE [Concomitant]
     Dosage: UNK

REACTIONS (4)
  - BIPOLAR II DISORDER [None]
  - BLOOD PRESSURE INCREASED [None]
  - DEPRESSION [None]
  - STRESS [None]
